FAERS Safety Report 7366250-X (Version None)
Quarter: 2011Q1

REPORT INFORMATION
  Report Type: 
  Country: None (occurrence: None)
  Receive Date: 20110322
  Receipt Date: 20110308
  Transmission Date: 20110831
  Serious: Yes (Hospitalization)
  Sender: FDA-Public Use
  Company Number: US-JNJFOC-20100201801

PATIENT
  Sex: Male
  Weight: 75.6 kg

DRUGS (4)
  1. REMICADE [Suspect]
     Indication: INFLAMMATORY BOWEL DISEASE
     Dosage: TOTAL 34 DOSES
     Route: 042
     Dates: start: 20050224, end: 20090928
  2. REMICADE [Suspect]
     Route: 042
     Dates: start: 20050224, end: 20090928
  3. REMICADE [Suspect]
     Indication: PROPHYLAXIS
     Route: 042
     Dates: start: 20050224, end: 20090928
  4. REMICADE [Suspect]
     Dosage: TOTAL 34 DOSES
     Route: 042
     Dates: start: 20050224, end: 20090928

REACTIONS (1)
  - ILEAL STENOSIS [None]
